FAERS Safety Report 8359538-7 (Version None)
Quarter: 2012Q2

REPORT INFORMATION
  Report Type: 
  Country: None (occurrence: None)
  Receive Date: 20120515
  Receipt Date: 20120507
  Transmission Date: 20120825
  Serious: Yes (Hospitalization)
  Sender: FDA-Public Use
  Company Number: US-PFIZER INC-2012111882

PATIENT
  Age: 49 Year
  Sex: Female
  Weight: 109 kg

DRUGS (3)
  1. TYVASO [Suspect]
     Indication: PULMONARY ARTERIAL HYPERTENSION
     Dosage: 54 UG, 4X/DAY
     Route: 055
     Dates: start: 20110729
  2. REVATIO [Suspect]
     Dosage: UNK
  3. LETAIRIS [Suspect]
     Dosage: UNK

REACTIONS (1)
  - FLUID OVERLOAD [None]
